FAERS Safety Report 4618341-1 (Version None)
Quarter: 2005Q1

REPORT INFORMATION
  Report Type: 
  Country: None (occurrence: None)
  Receive Date: 20050323
  Receipt Date: 20050316
  Transmission Date: 20050727
  Serious: No
  Sender: FDA-Public Use
  Company Number: 2005UW03916

PATIENT
  Sex: Female

DRUGS (3)
  1. ATACAND [Suspect]
     Dosage: 16 MG DAILY PO
     Route: 048
     Dates: start: 20041217
  2. METFORMIN HCL [Concomitant]
  3. ASPIRIN [Concomitant]

REACTIONS (1)
  - GASTRIC HAEMORRHAGE [None]
